FAERS Safety Report 15560052 (Version 2)
Quarter: 2018Q4

REPORT INFORMATION
  Report Type: Spontaneous
  Country: DE (occurrence: DE)
  Receive Date: 20181029
  Receipt Date: 20181031
  Transmission Date: 20190205
  Serious: Yes (Death, Hospitalization, Other)
  Sender: FDA-Public Use
  Company Number: DE-MYLANLABS-2018M1080413

PATIENT
  Age: 54 Year
  Sex: Female

DRUGS (4)
  1. ESTRADIOL MYLAN [Suspect]
     Active Substance: ESTRADIOL
     Dosage: 3 DF, QD (3 PUFFS ONCE A DAY)
     Route: 062
     Dates: start: 2015
  2. ESTRADIOL MYLAN [Suspect]
     Active Substance: ESTRADIOL
     Indication: HORMONE REPLACEMENT THERAPY
     Dosage: UNKNOWN
     Route: 062
  3. PROGESTAN [Suspect]
     Active Substance: PROGESTERONE
     Indication: PREVENTION OF ENDOMETRIAL HYPERPLASIA
     Dosage: UNKNOWN.
     Route: 065
  4. PROGESTAN [Suspect]
     Active Substance: PROGESTERONE
     Dosage: 100 MG, QD (1 CAPSULE DAILY)
     Route: 048
     Dates: start: 2015

REACTIONS (4)
  - Epilepsy [Unknown]
  - Death [Fatal]
  - Condition aggravated [Unknown]
  - Epileptic aura [Unknown]

NARRATIVE: CASE EVENT DATE: 2018
